FAERS Safety Report 9243383 (Version 1)
Quarter: 2013Q2

REPORT INFORMATION
  Report Type: Spontaneous
  Country: PL (occurrence: PL)
  Receive Date: 20130420
  Receipt Date: 20130420
  Transmission Date: 20140414
  Serious: Yes (Hospitalization)
  Sender: FDA-Public Use
  Company Number: PL-B.I. PHARMACEUTICALS,INC./RIDGEFIELD-2013-AP-00317AP

PATIENT
  Sex: Male

DRUGS (6)
  1. PRADAXA [Suspect]
     Indication: ATRIAL FIBRILLATION
     Route: 048
     Dates: start: 201202
  2. ACENOCUMAROL [Concomitant]
     Indication: ATRIAL FIBRILLATION
     Dates: end: 201202
  3. ATORIS [Concomitant]
     Indication: HYPERCHOLESTEROLAEMIA
  4. TRITACE [Concomitant]
     Indication: HYPERTENSION
  5. METOCARD [Concomitant]
     Indication: HYPERTENSION
  6. CARDURA [Concomitant]
     Indication: BENIGN PROSTATIC HYPERPLASIA

REACTIONS (1)
  - Cardiac failure [Unknown]
